FAERS Safety Report 7085897-1 (Version None)
Quarter: 2010Q4

REPORT INFORMATION
  Report Type: 
  Country: None (occurrence: None)
  Receive Date: 20101105
  Receipt Date: 20101101
  Transmission Date: 20110411
  Serious: Yes (Death, Other)
  Sender: FDA-Public Use
  Company Number: GR-WYE-H18493410

PATIENT
  Age: 70 Year
  Sex: Male

DRUGS (11)
  1. TIGECYCLINE [Suspect]
     Indication: CLOSTRIDIAL INFECTION
     Dosage: UNKNOWN
  2. TIGECYCLINE [Suspect]
     Indication: RENAL FAILURE
  3. TIGECYCLINE [Suspect]
     Indication: HYPERLACTACIDAEMIA
  4. TIGECYCLINE [Suspect]
     Indication: WHITE BLOOD CELL COUNT
  5. TIGECYCLINE [Suspect]
     Indication: PLATELET COUNT ABNORMAL
  6. VANCOMYCIN [Suspect]
     Indication: CLOSTRIDIAL INFECTION
  7. IMMU-G [Suspect]
     Indication: CLOSTRIDIAL INFECTION
     Dosage: 400 MG/KG
     Route: 042
  8. COLISTIN SULFATE [Suspect]
     Indication: INFECTION
     Dosage: UNKNOWN
  9. POLYMYCIN B SULFATE [Suspect]
     Indication: INFECTION
     Dosage: UNKNOWN
  10. MEROPENEM [Suspect]
     Indication: ENTEROBACTER INFECTION
     Dosage: UNKNOWN
  11. METRONIDAZOLE [Suspect]
     Indication: CLOSTRIDIAL INFECTION
     Route: 042

REACTIONS (6)
  - BACTERAEMIA [None]
  - DRUG INEFFECTIVE [None]
  - HEPATIC FUNCTION ABNORMAL [None]
  - MULTI-ORGAN FAILURE [None]
  - PROTEUS INFECTION [None]
  - SEPTIC SHOCK [None]
